FAERS Safety Report 8540214-2 (Version None)
Quarter: 2012Q3

REPORT INFORMATION
  Report Type: 
  Country: None (occurrence: None)
  Receive Date: 20120726
  Receipt Date: 20120716
  Transmission Date: 20120928
  Serious: Yes (Hospitalization)
  Sender: FDA-Public Use
  Company Number: GB-ROCHE-1091844

PATIENT
  Sex: Male
  Weight: 6.8 kg

DRUGS (2)
  1. HEPARIN [Concomitant]
     Dates: start: 20120601
  2. ALTEPLASE [Suspect]
     Indication: ARTERIAL THROMBOSIS LIMB
     Route: 042
     Dates: start: 20120601, end: 20120601

REACTIONS (2)
  - DYSKINESIA [None]
  - HAEMORRHAGE INTRACRANIAL [None]
